FAERS Safety Report 19678040 (Version 2)
Quarter: 2021Q3

REPORT INFORMATION
  Report Type: Spontaneous
  Country: FR (occurrence: FR)
  Receive Date: 20210809
  Receipt Date: 20210820
  Transmission Date: 20211014
  Serious: Yes (Other)
  Sender: FDA-Public Use
  Company Number: FR-MYLANLABS-2021M1049610

PATIENT
  Age: 72 Year
  Sex: Female
  Weight: 103 kg

DRUGS (3)
  1. FENTANYL. [Suspect]
     Active Substance: FENTANYL
     Indication: GAIT DISTURBANCE
     Dosage: UNK
     Route: 062
     Dates: start: 20210102, end: 20210106
  2. MORPHINE [Suspect]
     Active Substance: MORPHINE
     Indication: GAIT DISTURBANCE
     Dosage: UNK
     Route: 042
     Dates: start: 20201204
  3. MORPHINE [Suspect]
     Active Substance: MORPHINE
     Dosage: UNK
     Route: 042
     Dates: start: 20210104

REACTIONS (1)
  - Coma [Not Recovered/Not Resolved]

NARRATIVE: CASE EVENT DATE: 20210105
